FAERS Safety Report 23588480 (Version 1)
Quarter: 2024Q1

REPORT INFORMATION
  Report Type: Spontaneous
  Country: PT (occurrence: PT)
  Receive Date: 20240302
  Receipt Date: 20240302
  Transmission Date: 20240410
  Serious: Yes (Other)
  Sender: FDA-Public Use
  Company Number: PT-EMA-DD-20240125-7482689-090500

PATIENT
  Age: 55 Year
  Sex: Female

DRUGS (7)
  1. LETROZOLE [Interacting]
     Active Substance: LETROZOLE
     Indication: Metastases to pelvis
     Dates: end: 202011
  2. ZOLEDRONIC ACID [Interacting]
     Active Substance: ZOLEDRONIC ACID
     Indication: Breast cancer metastatic
     Dates: end: 202011
  3. RIBOCICLIB [Interacting]
     Active Substance: RIBOCICLIB
     Indication: Metastases to pelvis
     Dosage: UNKNOWN INITIAL DOSE
     Dates: start: 202011
  4. LETROZOLE [Interacting]
     Active Substance: LETROZOLE
     Indication: Breast cancer metastatic
  5. RIBOCICLIB [Interacting]
     Active Substance: RIBOCICLIB
     Indication: Breast cancer metastatic
     Dosage: UNKNOWN INITIAL DOSE
     Dates: start: 202011
  6. RIBOCICLIB [Interacting]
     Active Substance: RIBOCICLIB
     Indication: Breast cancer metastatic
  7. RIBOCICLIB [Interacting]
     Active Substance: RIBOCICLIB
     Indication: Metastases to pelvis
     Dates: end: 202011

REACTIONS (2)
  - Vitiligo [Unknown]
  - Drug-induced liver injury [Unknown]

NARRATIVE: CASE EVENT DATE: 20201101
